FAERS Safety Report 4497558-3 (Version None)
Quarter: 2004Q4

REPORT INFORMATION
  Report Type: 
  Country: None (occurrence: None)
  Receive Date: 20041104
  Receipt Date: 20041022
  Transmission Date: 20050328
  Serious: Yes (Death, Hospitalization)
  Sender: FDA-Public Use
  Company Number: 2002UW11513

PATIENT
  Age: 15 Year
  Sex: Female
  Weight: 49.8957 kg

DRUGS (12)
  1. DIPRIVAN [Suspect]
     Indication: SEDATION
     Dosage: 100 MG/HR IV
     Route: 042
     Dates: start: 20011220, end: 20011212
  2. VERSED [Concomitant]
  3. FENTANYL [Concomitant]
  4. NIMBEX [Concomitant]
  5. DOPAMINE HCL [Concomitant]
  6. NEMBUTAL [Concomitant]
  7. CEREBYX [Concomitant]
  8. PEPCID [Concomitant]
  9. ROCEPHIN [Concomitant]
  10. VANCOMYCIN [Concomitant]
  11. LASIX [Concomitant]
  12. MANNITOL [Concomitant]

REACTIONS (12)
  - BLOOD CREATINE PHOSPHOKINASE INCREASED [None]
  - CARDIAC ARREST [None]
  - CARDIO-RESPIRATORY ARREST [None]
  - ELECTROCARDIOGRAM QRS COMPLEX PROLONGED [None]
  - HYPERKALAEMIA [None]
  - HYPOKALAEMIA [None]
  - HYPOTENSION [None]
  - METABOLIC ACIDOSIS [None]
  - VENTRICULAR ARRHYTHMIA [None]
  - VENTRICULAR DYSFUNCTION [None]
  - VENTRICULAR HYPOKINESIA [None]
  - VENTRICULAR TACHYCARDIA [None]
